FAERS Safety Report 8844941 (Version 1)
Quarter: 2012Q4

REPORT INFORMATION
  Report Type: 
  Country: DE (occurrence: CA)
  Receive Date: 20121017
  Receipt Date: 20121017
  Transmission Date: 20130627
  Serious: Yes (Hospitalization, Other)
  Sender: FDA-Public Use
  Company Number: CA-FRI-1000039450

PATIENT
  Sex: Male

DRUGS (1)
  1. ROFLUMILAST [Suspect]
     Indication: OBSTRUCTIVE AIRWAYS DISORDER

REACTIONS (6)
  - Oedema peripheral [Recovering/Resolving]
  - Skin irritation [Recovering/Resolving]
  - Productive cough [Unknown]
  - Hypersensitivity [Recovering/Resolving]
  - Erythema [Recovering/Resolving]
  - Pruritus [Recovering/Resolving]
